FAERS Safety Report 7400457-8 (Version None)
Quarter: 2011Q2

REPORT INFORMATION
  Report Type: 
  Country: None (occurrence: None)
  Receive Date: 20110407
  Receipt Date: 20110329
  Transmission Date: 20111010
  Serious: Yes (Hospitalization, Other)
  Sender: FDA-Public Use
  Company Number: TH-PFIZER INC-2011023449

PATIENT
  Age: 15 Year
  Sex: Male
  Weight: 52 kg

DRUGS (19)
  1. VORICONAZOLE [Suspect]
     Indication: ASPERGILLOSIS
     Dosage: 330 MG, 2X/DAY
     Route: 042
     Dates: start: 20101223, end: 20101224
  2. VORICONAZOLE [Suspect]
     Dosage: 220 MG, 2X/DAY
     Route: 042
     Dates: start: 20101224, end: 20110105
  3. IDARUBICIN [Concomitant]
     Indication: CHEMOTHERAPY
  4. MULTI-VITAMINS [Concomitant]
     Indication: RENAL TUBULAR DISORDER
  5. VINCRISTINE [Concomitant]
     Indication: CHEMOTHERAPY
  6. NORMAL SALINE [Concomitant]
     Indication: SINUSITIS
     Dosage: 10 ML, 4X/DAY
     Route: 045
     Dates: start: 20101224
  7. PSEUDOEPHEDRINE [Concomitant]
     Indication: SINUSITIS
     Dosage: 30 MG, 2X/DAY
     Route: 048
     Dates: start: 20101224, end: 20110118
  8. ELSPAR [Concomitant]
     Indication: CHEMOTHERAPY
  9. BACTROBAN [Concomitant]
     Indication: HERPES ZOSTER
     Dosage: UNK
     Route: 061
     Dates: start: 20101220, end: 20110114
  10. CALCIUM CARBONATE [Concomitant]
     Indication: RENAL TUBULAR DISORDER
  11. VASELINE [Concomitant]
     Indication: LIP DRY
     Dosage: UNK
     Route: 061
     Dates: start: 20101204, end: 20110124
  12. VORICONAZOLE [Suspect]
     Dosage: 300 MG, 2X/DAY
     Route: 048
     Dates: start: 20110106, end: 20110131
  13. DEXAMETHASONE [Suspect]
     Indication: CHEMOTHERAPY
     Dosage: 4.5 MG, 2X/DAY
     Route: 048
     Dates: start: 20110110, end: 20110124
  14. ONDANSETRON [Concomitant]
     Indication: PROPHYLAXIS OF NAUSEA AND VOMITING
     Dosage: 8 MG, SINGLE
     Route: 042
     Dates: start: 20110115, end: 20110115
  15. CALCIUM CARBONATE [Concomitant]
     Indication: SUPPLEMENTATION THERAPY
     Dosage: 1000 MG, 2X/DAY
     Route: 048
     Dates: start: 20101230
  16. MULTI-VITAMINS [Concomitant]
     Indication: SUPPLEMENTATION THERAPY
     Dosage: 1 DF, 1X/DAY
     Route: 048
     Dates: start: 20101230
  17. METHOTREXATE [Concomitant]
     Indication: CHEMOTHERAPY
  18. ONDANSETRON [Concomitant]
     Dosage: 8 MG, SINGLE
     Route: 042
     Dates: start: 20110117, end: 20110117
  19. TRAMOL [Concomitant]
     Indication: PAIN
     Dosage: 50 MG, 2X/DAY
     Route: 048
     Dates: start: 20101222, end: 20110115

REACTIONS (2)
  - MUSCULAR WEAKNESS [None]
  - HY'S LAW CASE [None]
